FAERS Safety Report 17009934 (Version 1)
Quarter: 2019Q4

REPORT INFORMATION
  Report Type: Spontaneous
  Country: NL (occurrence: RO)
  Receive Date: 20191108
  Receipt Date: 20191108
  Transmission Date: 20200122
  Serious: Yes (Other)
  Sender: FDA-Public Use
  Company Number: RO-FRESENIUS KABI-FK201912225

PATIENT
  Age: 56 Year
  Sex: Male

DRUGS (8)
  1. BEVACIZUMAB. [Suspect]
     Active Substance: BEVACIZUMAB
     Indication: COLORECTAL CANCER METASTATIC
     Route: 042
     Dates: start: 20171107, end: 20180416
  2. IRINOTECAN [Concomitant]
     Active Substance: IRINOTECAN
     Indication: COLORECTAL CANCER METASTATIC
     Dosage: YES
     Route: 065
     Dates: start: 20181001
  3. FLUOROURACIL SODIUM [Concomitant]
     Active Substance: FLUOROURACIL SODIUM
     Indication: COLORECTAL CANCER METASTATIC
     Dosage: NO
     Route: 065
     Dates: start: 20171107, end: 20180416
  4. FLUOROURACIL SODIUM [Concomitant]
     Active Substance: FLUOROURACIL SODIUM
     Dosage: YES
     Route: 065
     Dates: start: 20181001
  5. FOLINIC ACID [Concomitant]
     Active Substance: LEUCOVORIN
     Indication: COLORECTAL CANCER METASTATIC
     Dosage: YES
     Route: 065
     Dates: start: 20181001
  6. OXALIPLATIN (MANUFACTURER UNKNOWN) [Suspect]
     Active Substance: OXALIPLATIN
     Indication: COLORECTAL CANCER METASTATIC
     Dosage: NO
     Route: 065
     Dates: start: 20171107, end: 20180416
  7. BEVACIZUMAB. [Suspect]
     Active Substance: BEVACIZUMAB
     Dates: start: 20181001
  8. FOLINIC ACID [Concomitant]
     Active Substance: LEUCOVORIN
     Dosage: NO
     Route: 065
     Dates: start: 20171107, end: 20180416

REACTIONS (6)
  - Haemorrhage [Unknown]
  - Peripheral sensory neuropathy [Unknown]
  - Proteinuria [Unknown]
  - Nausea [Unknown]
  - Epistaxis [Unknown]
  - Paraesthesia [Unknown]
